FAERS Safety Report 4564961-2 (Version None)
Quarter: 2005Q1

REPORT INFORMATION
  Report Type: 
  Country: None (occurrence: None)
  Receive Date: 20050131
  Receipt Date: 20050121
  Transmission Date: 20050727
  Serious: Yes (Hospitalization)
  Sender: FDA-Public Use
  Company Number: US-JNJFOC-20040901066

PATIENT
  Sex: Female

DRUGS (27)
  1. DURAGESIC [Suspect]
     Route: 062
  2. CLARINEX [Concomitant]
     Route: 049
  3. HYDROCODONE [Concomitant]
     Indication: PAIN
     Route: 049
  4. LORAZEPAM [Concomitant]
     Indication: ANXIETY
     Route: 049
  5. CLOZAPINE [Concomitant]
     Indication: SLEEP DISORDER THERAPY
     Route: 049
  6. PREMARIN [Concomitant]
     Indication: DRUG USE FOR UNKNOWN INDICATION
     Route: 049
  7. ASPIRIN [Concomitant]
     Route: 049
  8. BENADRYL [Concomitant]
     Route: 049
  9. QUININE [Concomitant]
  10. FIORINAL [Concomitant]
  11. FIORINAL [Concomitant]
  12. FIORINAL [Concomitant]
  13. BENTYL [Concomitant]
  14. DETROL [Concomitant]
  15. ASTELIN [Concomitant]
     Route: 045
  16. MULTIVITAMIN PLUS E [Concomitant]
  17. MULTIVITAMIN PLUS E [Concomitant]
  18. MULTIVITAMIN PLUS E [Concomitant]
  19. MULTIVITAMIN PLUS E [Concomitant]
  20. MULTIVITAMIN PLUS E [Concomitant]
  21. MULTIVITAMIN PLUS E [Concomitant]
  22. MULTIVITAMIN PLUS E [Concomitant]
  23. MULTIVITAMIN PLUS E [Concomitant]
  24. VIACTIN [Concomitant]
  25. PERCOCET [Concomitant]
  26. PERCOCET [Concomitant]
     Dosage: PRN
  27. AMBIEN [Concomitant]
     Dosage: HS

REACTIONS (10)
  - APPLICATION SITE DERMATITIS [None]
  - CONSTIPATION [None]
  - CYSTITIS [None]
  - DRY MOUTH [None]
  - DYSPNOEA [None]
  - HYPERHIDROSIS [None]
  - INSOMNIA [None]
  - KIDNEY INFECTION [None]
  - NAUSEA [None]
  - PRURITUS GENERALISED [None]
